FAERS Safety Report 16809074 (Version 1)
Quarter: 2019Q3

REPORT INFORMATION
  Report Type: Spontaneous
  Country: IT (occurrence: IT)
  Receive Date: 20190916
  Receipt Date: 20190916
  Transmission Date: 20191005
  Serious: Yes (Life-Threatening, Hospitalization)
  Sender: FDA-Public Use
  Company Number: IT-SCIEGEN PHARMACEUTICALS INC-2019SCILIT00256

PATIENT
  Age: 27 Year
  Sex: Female

DRUGS (2)
  1. CHARCOAL [Interacting]
     Active Substance: ACTIVATED CHARCOAL
  2. QUETIAPINE. [Suspect]
     Active Substance: QUETIAPINE

REACTIONS (2)
  - Intentional overdose [Recovering/Resolving]
  - Sinus tachycardia [Recovering/Resolving]
